FAERS Safety Report 8259167-X (Version None)
Quarter: 2012Q2

REPORT INFORMATION
  Report Type: 
  Country: None (occurrence: None)
  Receive Date: 20120404
  Receipt Date: 20120402
  Transmission Date: 20120825
  Serious: No
  Sender: FDA-Public Use
  Company Number: DE-FRI-1000027466

PATIENT
  Age: 36 Year
  Sex: Female

DRUGS (4)
  1. ESCITALOPRAM [Suspect]
     Indication: DEPRESSION
     Dosage: CHANGING DOSAGES
     Dates: start: 20050101, end: 20111214
  2. NYSTATIN [Suspect]
     Dates: start: 20111201, end: 20111201
  3. ESCITALOPRAM [Suspect]
     Dosage: 20 MG
     Dates: start: 20111215, end: 20120103
  4. ESCITALOPRAM [Suspect]
     Dosage: DECREASED DOSAGE (NOS)
     Dates: start: 20120104

REACTIONS (4)
  - RESTLESSNESS [None]
  - AGITATION [None]
  - FEELING ABNORMAL [None]
  - DRUG INTERACTION [None]
